FAERS Safety Report 9262264 (Version 2)
Quarter: 2013Q2

REPORT INFORMATION
  Report Type: Spontaneous
  Country: US (occurrence: US)
  Receive Date: 20130430
  Receipt Date: 20130517
  Transmission Date: 20140414
  Serious: Yes (Hospitalization)
  Sender: FDA-Public Use
  Company Number: US-009507513-1304USA016314

PATIENT
  Age: 50 Year
  Sex: Male

DRUGS (3)
  1. JANUVIA [Suspect]
     Dosage: UNK
     Route: 048
     Dates: start: 20130321, end: 20130415
  2. PREDNISONE [Suspect]
     Dosage: UNK
  3. METFORMIN [Concomitant]
     Dosage: UNK

REACTIONS (3)
  - Subcutaneous abscess [Unknown]
  - Drug hypersensitivity [Unknown]
  - Blood glucose increased [Unknown]
